FAERS Safety Report 20350024 (Version 1)
Quarter: 2022Q1

REPORT INFORMATION
  Report Type: Spontaneous
  Country: US (occurrence: US)
  Receive Date: 20220119
  Receipt Date: 20220119
  Transmission Date: 20220423
  Serious: Yes (Hospitalization)
  Sender: FDA-Public Use
  Company Number: US-SA-SAC20220118000937

PATIENT
  Age: 59 Year
  Sex: Female

DRUGS (1)
  1. DUPIXENT [Suspect]
     Active Substance: DUPILUMAB
     Dosage: 300 MG
     Route: 058
     Dates: start: 202107, end: 202107

REACTIONS (5)
  - Cardiac disorder [Unknown]
  - Condition aggravated [Unknown]
  - Renal disorder [Unknown]
  - Condition aggravated [Unknown]
  - Eye operation [Unknown]
